FAERS Safety Report 20480712 (Version 2)
Quarter: 2022Q1

REPORT INFORMATION
  Report Type: Spontaneous
  Country: GB (occurrence: None)
  Receive Date: 20220216
  Receipt Date: 20220227
  Transmission Date: 20220423
  Serious: Yes (Hospitalization, Other)
  Sender: FDA-Public Use
  Company Number: 2022A073189

PATIENT
  Age: 62 Year
  Sex: Male

DRUGS (2)
  1. BENRALIZUMAB [Suspect]
     Active Substance: BENRALIZUMAB
     Indication: Asthma
     Route: 058
     Dates: start: 201909, end: 202002
  2. BENRALIZUMAB [Suspect]
     Active Substance: BENRALIZUMAB
     Indication: Eosinophilic oesophagitis
     Route: 058
     Dates: start: 201909, end: 202002

REACTIONS (1)
  - Immune-mediated cystitis [Recovered/Resolved]

NARRATIVE: CASE EVENT DATE: 20200101
